FAERS Safety Report 4292679-2 (Version None)
Quarter: 2004Q1

REPORT INFORMATION
  Report Type: 
  Country: None (occurrence: None)
  Receive Date: 20040126
  Receipt Date: 20031016
  Transmission Date: 20041129
  Serious: No
  Sender: FDA-Public Use
  Company Number: USA031049059

PATIENT
  Age: 64 Year
  Sex: Female

DRUGS (6)
  1. FORTEO [Suspect]
     Indication: OSTEOPOROSIS
     Dates: start: 20030823
  2. FLUOXETINE [Concomitant]
  3. LEVOTHROID [Concomitant]
  4. ZOCOR [Concomitant]
  5. HYDROCODONE [Concomitant]
  6. ASPIRIN [Concomitant]

REACTIONS (2)
  - IMPAIRED HEALING [None]
  - INJECTION SITE HAEMORRHAGE [None]
